FAERS Safety Report 10330606 (Version 1)
Quarter: 2014Q3

REPORT INFORMATION
  Report Type: Spontaneous
  Country: FR (occurrence: FR)
  Receive Date: 20140722
  Receipt Date: 20140722
  Transmission Date: 20150326
  Serious: Yes (Hospitalization)
  Sender: FDA-Public Use
  Company Number: FR-MERCK-1407FRA006511

PATIENT
  Age: 29 Year
  Sex: Female

DRUGS (2)
  1. URBANYL [Suspect]
     Active Substance: CLOBAZAM
     Dosage: UNK
     Route: 048
     Dates: end: 20130722
  2. NOXAFIL [Suspect]
     Active Substance: POSACONAZOLE
     Dosage: UNK
     Route: 048
     Dates: start: 201307, end: 20130722

REACTIONS (1)
  - Hepatocellular injury [Recovered/Resolved]

NARRATIVE: CASE EVENT DATE: 20130722
